FAERS Safety Report 5660790-7 (Version None)
Quarter: 2008Q1

REPORT INFORMATION
  Report Type: 
  Country: None (occurrence: None)
  Receive Date: 20080311
  Receipt Date: 20080303
  Transmission Date: 20080703
  Serious: Yes (Hospitalization, Disabling, Other)
  Sender: FDA-Public Use
  Company Number: AT-BAYER-200810869GPV

PATIENT
  Age: 69 Year
  Sex: Male

DRUGS (2)
  1. AVELOX [Suspect]
     Indication: BRONCHITIS
     Route: 048
     Dates: start: 20071202, end: 20071213
  2. FRAXIPARIN [NADROPARIN CALCIUM] [Concomitant]
     Indication: THROMBOPHLEBITIS SUPERFICIAL
     Route: 065
     Dates: start: 20080101

REACTIONS (4)
  - ANGIOPATHY [None]
  - OEDEMA PERIPHERAL [None]
  - TENDON DISORDER [None]
  - THROMBOPHLEBITIS SUPERFICIAL [None]
